FAERS Safety Report 9913968 (Version 1)
Quarter: 2014Q1

REPORT INFORMATION
  Report Type: Spontaneous
  Country: CA (occurrence: CA)
  Receive Date: 20140220
  Receipt Date: 20140220
  Transmission Date: 20141002
  Serious: Yes (Death)
  Sender: FDA-Public Use
  Company Number: CA-ACTELION-A-NJ2014-94817

PATIENT
  Age: 69 Year
  Sex: Female
  Weight: 49.89 kg

DRUGS (10)
  1. VELETRI [Suspect]
     Indication: PULMONARY ARTERIAL HYPERTENSION
     Dosage: 53 NG/KG, PER MIN
     Route: 042
     Dates: start: 20131113, end: 20140206
  2. TYLENOL [Concomitant]
     Dosage: 325 MG, TID
  3. SYNTHROID [Concomitant]
     Dosage: UNK
  4. FUROSEMIDE TEVA [Concomitant]
  5. CALCIUM CITRATE W/MAGNESIUM/VITAMIN D NOS [Concomitant]
  6. PANTOPRAZOL RANBAXY [Concomitant]
  7. SPIRONOLACTONE TEVA [Concomitant]
     Dosage: 50 MG, UNK
  8. RISEDRONATE SODIUM [Concomitant]
     Dosage: 35 MG, UNK
  9. IRON [Concomitant]
  10. OXYGEN [Concomitant]
     Dosage: 2 L, PER MIN

REACTIONS (2)
  - Aspiration [Fatal]
  - Vomiting [Unknown]
